FAERS Safety Report 8180833-9 (Version None)
Quarter: 2012Q1

REPORT INFORMATION
  Report Type: 
  Country: None (occurrence: None)
  Receive Date: 20120302
  Receipt Date: 20120229
  Transmission Date: 20120608
  Serious: Yes (Other)
  Sender: FDA-Public Use
  Company Number: US-JNJFOC-20120300490

PATIENT
  Age: 78 Year
  Sex: Male
  Weight: 106.6 kg

DRUGS (1)
  1. ROLAIDS SOFTCHEWS [Suspect]
     Indication: FLATULENCE
     Dosage: ONE CHEW AS NEEDED, SOMETIMES EVERY TWO HOURS, FOR YEARS
     Route: 048

REACTIONS (4)
  - LYMPHOMA [None]
  - ULCER [None]
  - PRODUCT QUALITY ISSUE [None]
  - GASTRIC ULCER [None]
